FAERS Safety Report 4731430-6 (Version None)
Quarter: 2005Q3

REPORT INFORMATION
  Report Type: 
  Country: None (occurrence: None)
  Receive Date: 20050801
  Receipt Date: 20050801
  Transmission Date: 20060218
  Serious: Yes (Hospitalization)
  Sender: FDA-Public Use
  Company Number: None

PATIENT
  Age: 77 Year
  Sex: Female
  Weight: 74 kg

DRUGS (10)
  1. DIGOXIN [Suspect]
     Indication: ATRIAL FIBRILLATION
     Dosage: .125MG DAILY ORAL
     Route: 048
     Dates: start: 20040101, end: 20050218
  2. WARFARIN [Suspect]
     Indication: ATRIAL FIBRILLATION
     Dosage: 9MG DAILY ORAL
     Route: 048
     Dates: start: 20040101, end: 20050218
  3. OXYCODONE [Concomitant]
  4. GABAPENTIN [Concomitant]
  5. WARFARIN SODIUM [Concomitant]
  6. ENALAPRIL MALEATE [Concomitant]
  7. SIMVASTATIN [Concomitant]
  8. DIGOXIN [Concomitant]
  9. RANITIDINE [Concomitant]
  10. GLIPIZIDE [Concomitant]

REACTIONS (4)
  - BRADYCARDIA [None]
  - DIZZINESS [None]
  - HEART RATE DECREASED [None]
  - INTERNATIONAL NORMALISED RATIO INCREASED [None]
